FAERS Safety Report 10228233 (Version 2)
Quarter: 2014Q4

REPORT INFORMATION
  Report Type: Spontaneous
  Country: US (occurrence: US)
  Receive Date: 20140610
  Receipt Date: 20141009
  Transmission Date: 20150528
  Serious: Yes (Hospitalization, Other)
  Sender: FDA-Public Use
  Company Number: US-BAYER-2014-086413

PATIENT
  Age: 30 Year
  Sex: Female
  Weight: 54.42 kg

DRUGS (6)
  1. SULFACETAMIDE [Concomitant]
     Active Substance: SULFACETAMIDE
     Dosage: 10 %, UNK
     Dates: start: 20120615
  2. NUVARING [Concomitant]
     Active Substance: ETHINYL ESTRADIOL\ETONOGESTREL
     Indication: CONTRACEPTION
  3. NORCO [Concomitant]
     Active Substance: ACETAMINOPHEN\HYDROCODONE BITARTRATE
     Indication: PAIN
  4. MIRENA [Suspect]
     Active Substance: LEVONORGESTREL
     Indication: CONTRACEPTION
     Dosage: 20 MCG/24HR, CONT
     Route: 015
     Dates: start: 20120418, end: 20120628
  5. KETOTIFEN [Concomitant]
     Active Substance: KETOTIFEN
     Dosage: 0.025 %, UNK
     Dates: start: 20120615
  6. IBUPROFEN. [Concomitant]
     Active Substance: IBUPROFEN
     Dosage: 800 MG, UNK
     Dates: start: 20120615

REACTIONS (17)
  - Anxiety [None]
  - Uterine perforation [None]
  - Pelvic pain [None]
  - Injury [None]
  - Genital haemorrhage [None]
  - Pain [None]
  - Emotional distress [None]
  - Depression [None]
  - Medical device discomfort [None]
  - Procedural haemorrhage [None]
  - Device dislocation [None]
  - Device issue [None]
  - Internal injury [None]
  - Abdominal pain lower [None]
  - Fear [None]
  - Depressed mood [None]
  - Menorrhagia [None]

NARRATIVE: CASE EVENT DATE: 20120601
